FAERS Safety Report 25583457 (Version 1)
Quarter: 2025Q3

REPORT INFORMATION
  Report Type: Spontaneous
  Country: TR (occurrence: TR)
  Receive Date: 20250721
  Receipt Date: 20250721
  Transmission Date: 20251020
  Serious: Yes (Other)
  Sender: Unknown Manufacturer
  Company Number: TR-STRIDES ARCOLAB LIMITED-2025OS000189

PATIENT
  Age: 33 Year
  Sex: Female

DRUGS (1)
  1. MIDAZOLAM [Suspect]
     Active Substance: MIDAZOLAM
     Indication: Anaesthesia procedure
     Route: 065

REACTIONS (4)
  - Hypersensitivity [Unknown]
  - Cardiovascular symptom [Unknown]
  - Respiratory symptom [Unknown]
  - Cutaneous symptom [Unknown]
